FAERS Safety Report 8098681-7 (Version None)
Quarter: 2012Q1

REPORT INFORMATION
  Report Type: 
  Country: None (occurrence: None)
  Receive Date: 20120129
  Receipt Date: 20111024
  Transmission Date: 20120608
  Serious: No
  Sender: FDA-Public Use
  Company Number: US-ABBOTT-11P-163-0867751-00

PATIENT
  Age: 20 Year
  Sex: Female

DRUGS (3)
  1. YAZ [Concomitant]
     Indication: CONTRACEPTION
  2. ACYCLOVIR [Concomitant]
     Indication: ORAL HERPES
  3. HUMIRA [Suspect]
     Indication: PSORIATIC ARTHROPATHY
     Dates: start: 20110501

REACTIONS (3)
  - SKIN ODOUR ABNORMAL [None]
  - SEBORRHOEA [None]
  - PAROSMIA [None]
